FAERS Safety Report 5665051-8 (Version None)
Quarter: 2008Q1

REPORT INFORMATION
  Report Type: 
  Country: None (occurrence: None)
  Receive Date: 20080314
  Receipt Date: 20080304
  Transmission Date: 20080703
  Serious: Yes (Other)
  Sender: FDA-Public Use
  Company Number: US-PFIZER INC-2008020982

PATIENT
  Sex: Female
  Weight: 59.9 kg

DRUGS (1)
  1. ZMAX [Suspect]
     Indication: PHARYNGOLARYNGEAL PAIN
     Dates: start: 20080302, end: 20080302

REACTIONS (2)
  - TONGUE DISORDER [None]
  - TONGUE OEDEMA [None]
